FAERS Safety Report 9538713 (Version 1)
Quarter: 2013Q2

REPORT INFORMATION
  Report Type: Spontaneous
  Country: US (occurrence: None)
  Receive Date: 20130517
  Receipt Date: 20130517
  Transmission Date: 20140414
  Serious: Yes (Other)
  Sender: FDA-Public Use
  Company Number: 1000042985

PATIENT
  Age: 69 Year
  Sex: Female

DRUGS (8)
  1. VIIBRYD [Suspect]
     Indication: DEPRESSION
     Dosage: 10 MG, 1 IN 1 D
     Route: 048
     Dates: start: 20111025, end: 20111031
  2. VIIBRYD [Suspect]
     Dosage: 40 MG, 1 IN1 D
     Route: 048
     Dates: start: 20111108, end: 20130222
  3. ADDERAIL [Concomitant]
  4. ARIMIDEX [Concomitant]
  5. PANTOPRAZOLE [Concomitant]
  6. BIOTIN [Concomitant]
  7. VITAMIN D [Concomitant]
  8. CALCIUM [Concomitant]

REACTIONS (6)
  - Irritability [None]
  - Agitation [None]
  - Anxiety [None]
  - Insomnia [None]
  - Tremor [None]
  - Peripheral coldness [None]
